FAERS Safety Report 13301968 (Version 4)
Quarter: 2018Q1

REPORT INFORMATION
  Report Type: Spontaneous
  Country: IT (occurrence: IT)
  Receive Date: 20170307
  Receipt Date: 20180212
  Transmission Date: 20180508
  Serious: Yes (Hospitalization, Other)
  Sender: FDA-Public Use
  Company Number: IT-BRISTOL-MYERS SQUIBB COMPANY-BMS-2017-015275

PATIENT
  Age: 80 Year
  Sex: Female

DRUGS (1)
  1. COUMADIN [Suspect]
     Active Substance: WARFARIN SODIUM
     Indication: PRODUCT USED FOR UNKNOWN INDICATION
     Dosage: UNK, QD
     Route: 048

REACTIONS (8)
  - Head injury [Unknown]
  - Radius fracture [Unknown]
  - Fall [Unknown]
  - Humerus fracture [Unknown]
  - Limb injury [Unknown]
  - Chondropathy [Unknown]
  - Ulna fracture [Unknown]
  - Cephalhaematoma [Unknown]

NARRATIVE: CASE EVENT DATE: 20160819
